FAERS Safety Report 24556531 (Version 4)
Quarter: 2025Q4

REPORT INFORMATION
  Report Type: Spontaneous
  Country: CA (occurrence: CA)
  Receive Date: 20241028
  Receipt Date: 20251204
  Transmission Date: 20260118
  Serious: Yes (Other)
  Sender: PFIZER
  Company Number: CA-PFIZER INC-202100922852

PATIENT
  Age: 78 Year
  Sex: Male

DRUGS (27)
  1. RAPAMUNE [Suspect]
     Active Substance: SIROLIMUS
     Indication: Aplasia pure red cell
     Dosage: 2 MG, DAILY
     Route: 048
  2. RAPAMUNE [Suspect]
     Active Substance: SIROLIMUS
     Indication: Myelodysplastic syndrome
     Dosage: 2 MG, DAILY (ON MONDAYS AND THURSDAYS)
     Route: 048
  3. RAPAMUNE [Suspect]
     Active Substance: SIROLIMUS
     Dosage: 1 MG, DAILY (ON TUES-WED, FRI, SAT, SUN)
     Route: 048
  4. ALTACE [Concomitant]
     Active Substance: RAMIPRIL
     Dosage: 2.5 MG, DAILY
     Route: 048
  5. AMLODIPINE [Concomitant]
     Active Substance: AMLODIPINE BESYLATE
     Dosage: 5 MG, DAILY
  6. BISOPROLOL [Concomitant]
     Active Substance: BISOPROLOL
     Dosage: 2.5 MG
     Route: 048
  7. CYCLOSPORINE [Concomitant]
     Active Substance: CYCLOSPORINE
     Dosage: 150 MG, 2X/DAY
     Route: 048
  8. CYCLOSPORINE [Concomitant]
     Active Substance: CYCLOSPORINE
     Dosage: 100 MG, 2X/DAY
     Route: 048
  9. VITAMIN B12 [Concomitant]
     Active Substance: CYANOCOBALAMIN
     Dosage: UNK, DAILY
     Route: 048
  10. GLICLAZIDE [Concomitant]
     Active Substance: GLICLAZIDE
     Dosage: 30 MG, DAILY WITH BREAKFAST
     Route: 048
  11. EPREX [Concomitant]
     Active Substance: ERYTHROPOIETIN
     Dosage: 40000 IU, WEEKLY, ON MONDAYS
     Route: 058
     Dates: start: 202407, end: 202410
  12. EPREX [Concomitant]
     Active Substance: ERYTHROPOIETIN
     Dosage: 20000 IU, WEEKLY
     Route: 058
  13. EPREX [Concomitant]
     Active Substance: ERYTHROPOIETIN
     Dosage: 40000 IU, EVERY OTHER WEEK
     Route: 058
  14. EPREX [Concomitant]
     Active Substance: ERYTHROPOIETIN
     Dosage: 40000 IU, WEEKLY (TUESDAYS)
     Route: 058
     Dates: start: 202503
  15. FOLIC ACID [Concomitant]
     Active Substance: FOLIC ACID
     Indication: Haemolysis
     Dosage: 5 MG, DAILY
     Route: 048
  16. GASTROFILM [Concomitant]
     Indication: Antineutrophil cytoplasmic antibody decreased
     Dosage: 300 UG, AS NEEDED
     Route: 058
  17. GLUCOPHAGE [Concomitant]
     Active Substance: METFORMIN HYDROCHLORIDE
     Dosage: 1000 MG, 3 TIMES WEEKLY
     Route: 048
  18. HYDROMORPHONE [Concomitant]
     Active Substance: HYDROMORPHONE
     Dosage: 0.5-1MG EVERY 4 HOURS PRN
     Route: 048
  19. MAGNESIUM [Concomitant]
     Active Substance: MAGNESIUM
     Dosage: 500 MG, 2X/DAY
  20. MAGNESIUM [Concomitant]
     Active Substance: MAGNESIUM
     Dosage: 420 MG, DAILY
     Route: 048
  21. METOPROLOL [Concomitant]
     Active Substance: METOPROLOL
     Dosage: 25 MG, 2X/DAY
     Route: 048
  22. REBLOZYL [Concomitant]
     Active Substance: LUSPATERCEPT-AAMT
     Indication: Anaemia
     Dosage: 1.75 MG/KG 3 TIMES WEEKLY
     Route: 058
     Dates: start: 2021
  23. REBLOZYL [Concomitant]
     Active Substance: LUSPATERCEPT-AAMT
     Indication: Myelodysplastic syndrome
     Dosage: 1.75 MG/KG, EVERY 3 WEEKS
     Route: 058
     Dates: start: 20240326, end: 202410
  24. REBLOZYL [Concomitant]
     Active Substance: LUSPATERCEPT-AAMT
     Dosage: 1.33 MG/KG, EVERY 3 WEEKS ON WEDNESDAYS
  25. VITAMIN D3 [Concomitant]
     Active Substance: CHOLECALCIFEROL
     Dosage: 2000 IU, DAILY
     Route: 048
  26. XARELTO [Concomitant]
     Active Substance: RIVAROXABAN
     Indication: Atrial fibrillation
     Dosage: 15 MG, DAILY
     Route: 048
  27. XARELTO [Concomitant]
     Active Substance: RIVAROXABAN
     Indication: Atrial flutter

REACTIONS (23)
  - Neutropenia [Unknown]
  - Haemoglobin decreased [Not Recovered/Not Resolved]
  - Haemoglobin increased [Unknown]
  - Hypertension [Unknown]
  - Abdominal discomfort [Unknown]
  - Fatigue [Not Recovered/Not Resolved]
  - Dyspnoea [Not Recovered/Not Resolved]
  - Asthenia [Unknown]
  - Red blood cell count decreased [Unknown]
  - Haematocrit decreased [Unknown]
  - Neutrophil count decreased [Unknown]
  - Mean cell volume increased [Unknown]
  - Platelet count decreased [Unknown]
  - Constipation [Unknown]
  - Blood creatinine increased [Unknown]
  - Glomerular filtration rate decreased [Unknown]
  - Blood lactate dehydrogenase increased [Unknown]
  - Blood iron increased [Unknown]
  - Transferrin saturation increased [Unknown]
  - Off label use [Unknown]
  - Off label use [Unknown]
  - Renal disorder [Unknown]
  - Serum ferritin increased [Unknown]

NARRATIVE: CASE EVENT DATE: 20231027
